FAERS Safety Report 9049615 (Version 2)
Quarter: 2013Q2

REPORT INFORMATION
  Report Type: Spontaneous
  Country: US (occurrence: US)
  Receive Date: 20130205
  Receipt Date: 20130529
  Transmission Date: 20140414
  Serious: Yes (Hospitalization, Other)
  Sender: FDA-Public Use
  Company Number: US-ALEXION-A201300121

PATIENT
  Age: 37 Year
  Sex: Male

DRUGS (2)
  1. SOLIRIS 300MG [Suspect]
     Indication: PAROXYSMAL NOCTURNAL HAEMOGLOBINURIA
     Dosage: 900 MG, Q2W
     Route: 042
     Dates: start: 20120828
  2. DILAUDID [Concomitant]
     Indication: PAIN
     Dosage: UNK
     Dates: start: 201212

REACTIONS (3)
  - Appendicectomy [Unknown]
  - Abdominal pain [Unknown]
  - Pain in extremity [Unknown]
